FAERS Safety Report 6417807-1 (Version None)
Quarter: 2009Q4

REPORT INFORMATION
  Report Type: 
  Country: None (occurrence: None)
  Receive Date: 20091027
  Receipt Date: 20091027
  Transmission Date: 20100525
  Serious: Yes (Other)
  Sender: FDA-Public Use
  Company Number: None

PATIENT
  Sex: Female
  Weight: 38.8 kg

DRUGS (1)
  1. BACTRIM [Suspect]
     Indication: URINARY TRACT INFECTION
     Dosage: PO
     Route: 048

REACTIONS (7)
  - EYE SWELLING [None]
  - HYPOAESTHESIA ORAL [None]
  - OROPHARYNGEAL PAIN [None]
  - PARAESTHESIA [None]
  - PRURITUS [None]
  - PYREXIA [None]
  - RASH [None]
